FAERS Safety Report 5570831-3 (Version None)
Quarter: 2007Q4

REPORT INFORMATION
  Report Type: 
  Country: None (occurrence: None)
  Receive Date: 20071221
  Receipt Date: 20071213
  Transmission Date: 20080405
  Serious: Yes (Hospitalization)
  Sender: FDA-Public Use
  Company Number: CH-ELI_LILLY_AND_COMPANY-CH200712002863

PATIENT
  Age: 50 Year
  Sex: Male

DRUGS (5)
  1. ZYPREXA [Suspect]
     Indication: PARANOID PERSONALITY DISORDER
     Dosage: 2.5 MG, 2/D
     Route: 048
     Dates: start: 20071011, end: 20071111
  2. SORTIS [Concomitant]
     Indication: HYPERLIPIDAEMIA
     Dosage: 20 MG, DAILY (1/D)
     Route: 048
     Dates: end: 20070101
  3. TRITTICO [Concomitant]
     Indication: DEPRESSION
     Dosage: 200 MG, DAILY (1/D)
     Route: 048
  4. DIAMICRON [Concomitant]
     Dosage: 60 MG, DAILY (1/D)
     Route: 048
  5. BIPERIDEN HYDROCHLORIDE TAB [Concomitant]
     Dosage: 2 MG, UNK
     Route: 048
     Dates: start: 20071111

REACTIONS (12)
  - AKATHISIA [None]
  - BACK PAIN [None]
  - BLOOD CREATINE PHOSPHOKINASE INCREASED [None]
  - BODY TEMPERATURE INCREASED [None]
  - COORDINATION ABNORMAL [None]
  - FALL [None]
  - GAIT DISTURBANCE [None]
  - HYPERHIDROSIS [None]
  - LEUKOCYTOSIS [None]
  - NEUROLOGICAL SYMPTOM [None]
  - PSYCHOMOTOR HYPERACTIVITY [None]
  - TACHYCARDIA [None]
